FAERS Safety Report 14454702 (Version 2)
Quarter: 2018Q1

REPORT INFORMATION
  Report Type: Spontaneous
  Country: US (occurrence: US)
  Receive Date: 20180129
  Receipt Date: 20180202
  Transmission Date: 20180509
  Serious: No
  Sender: FDA-Public Use
  Company Number: US-ALLERGAN-1763003US

PATIENT

DRUGS (1)
  1. URSO 250 [Suspect]
     Active Substance: URSODIOL
     Indication: PRODUCT USED FOR UNKNOWN INDICATION
     Dosage: UNK
     Route: 065
     Dates: end: 201612

REACTIONS (2)
  - Malaise [Unknown]
  - Enzyme activity abnormal [Recovering/Resolving]
